FAERS Safety Report 13270032 (Version 4)
Quarter: 2018Q1

REPORT INFORMATION
  Report Type: Spontaneous
  Country: GB (occurrence: GB)
  Receive Date: 20170224
  Receipt Date: 20180131
  Transmission Date: 20180508
  Serious: Yes (Hospitalization, Other)
  Sender: FDA-Public Use
  Company Number: GB-MYLANLABS-2017M1011710

PATIENT
  Age: 21 Year
  Sex: Male
  Weight: 89 kg

DRUGS (2)
  1. CLOZARIL [Suspect]
     Active Substance: CLOZAPINE
     Indication: SCHIZOPHRENIA
     Dosage: UNK
     Route: 048
     Dates: start: 20151117
  2. CLOZARIL [Suspect]
     Active Substance: CLOZAPINE
     Dosage: 75 MG, PM
     Route: 048
     Dates: end: 20170217

REACTIONS (6)
  - Fatigue [Unknown]
  - Drug ineffective [Unknown]
  - Tachycardia [Unknown]
  - Treatment noncompliance [Recovering/Resolving]
  - Delusion [Unknown]
  - Sedation [Unknown]

NARRATIVE: CASE EVENT DATE: 20151117
